FAERS Safety Report 6071558-4 (Version None)
Quarter: 2009Q1

REPORT INFORMATION
  Report Type: 
  Country: None (occurrence: None)
  Receive Date: 20090205
  Receipt Date: 20090205
  Transmission Date: 20090719
  Serious: No
  Sender: FDA-Public Use
  Company Number: None

PATIENT
  Sex: Male

DRUGS (1)
  1. ERBITUX [Suspect]
     Indication: HEAD AND NECK CANCER
     Dosage: 100MG 1TIME TEST DOSE IV
     Route: 042
     Dates: start: 20090203

REACTIONS (4)
  - PARAESTHESIA [None]
  - PRURITUS [None]
  - STOMATITIS [None]
  - TONGUE DISORDER [None]
